FAERS Safety Report 17017885 (Version 1)
Quarter: 2019Q4

REPORT INFORMATION
  Report Type: Spontaneous
  Country: US (occurrence: US)
  Receive Date: 20191111
  Receipt Date: 20191111
  Transmission Date: 20200122
  Serious: No
  Sender: FDA-Public Use
  Company Number: US-BIOMARINAP-US-2019-126651

PATIENT

DRUGS (2)
  1. VIMIZIM [Suspect]
     Active Substance: ELOSULFASE ALFA
     Dosage: 60 MILLIGRAM, QW
     Route: 042
     Dates: start: 20191008
  2. VIMIZIM [Suspect]
     Active Substance: ELOSULFASE ALFA
     Indication: MUCOPOLYSACCHARIDOSIS IV
     Dosage: 100 MILLIGRAM, QW
     Route: 042
     Dates: start: 20190114

REACTIONS (2)
  - Asthma [Recovered/Resolved]
  - Product dose omission [Unknown]
